FAERS Safety Report 25667513 (Version 2)
Quarter: 2025Q3

REPORT INFORMATION
  Report Type: Spontaneous
  Country: US (occurrence: US)
  Receive Date: 20250811
  Receipt Date: 20250915
  Transmission Date: 20251020
  Serious: No
  Sender: SANOFI AVENTIS
  Company Number: US-SA-2025SA234385

PATIENT
  Age: 60 Year
  Sex: Female
  Weight: 67.58 kg

DRUGS (9)
  1. DUPIXENT [Suspect]
     Active Substance: DUPILUMAB
     Indication: Asthma
     Dosage: 300 MG, QOW
     Route: 058
  2. DUPIXENT [Suspect]
     Active Substance: DUPILUMAB
     Indication: Dermatitis atopic
  3. DUPIXENT [Suspect]
     Active Substance: DUPILUMAB
     Indication: Dyshidrotic eczema
  4. CLOBETASOL [Concomitant]
     Active Substance: CLOBETASOL
  5. TACROLIMUS [Concomitant]
     Active Substance: TACROLIMUS
  6. ROSUVASTATIN CALCIUM [Concomitant]
     Active Substance: ROSUVASTATIN CALCIUM
  7. MAGNESIUM [Concomitant]
     Active Substance: MAGNESIUM
  8. MIDODRINE HYDROCHLORIDE [Concomitant]
     Active Substance: MIDODRINE HYDROCHLORIDE
  9. MIDODRINE HYDROCHLORIDE [Concomitant]
     Active Substance: MIDODRINE HYDROCHLORIDE

REACTIONS (7)
  - Dry skin [Recovered/Resolved]
  - Blister [Unknown]
  - Skin fissures [Unknown]
  - Pain in extremity [Recovered/Resolved]
  - Erythema [Recovered/Resolved]
  - Dermatitis atopic [Recovered/Resolved]
  - Product use in unapproved indication [Unknown]
